FAERS Safety Report 6255244-3 (Version None)
Quarter: 2009Q3

REPORT INFORMATION
  Report Type: 
  Country: None (occurrence: None)
  Receive Date: 20090702
  Receipt Date: 20090622
  Transmission Date: 20100115
  Serious: Yes (Other)
  Sender: FDA-Public Use
  Company Number: PHHY2009TR24886

PATIENT

DRUGS (7)
  1. FORADIL COMBI [Suspect]
     Indication: ASTHMA
  2. FORADIL COMBI [Suspect]
     Dosage: UNK
     Route: 048
     Dates: start: 20090616
  3. THEOPHYLLINE [Concomitant]
  4. CLARITHROMYCIN [Concomitant]
  5. DUACT [Concomitant]
  6. PREDNOL [Concomitant]
     Route: 042
  7. OLIVE OIL [Concomitant]

REACTIONS (11)
  - CONDITION AGGRAVATED [None]
  - DIZZINESS [None]
  - DYSGEUSIA [None]
  - ERYTHEMA [None]
  - GENERALISED ERYTHEMA [None]
  - GENERALISED OEDEMA [None]
  - HEADACHE [None]
  - HYPERSENSITIVITY [None]
  - INCORRECT ROUTE OF DRUG ADMINISTRATION [None]
  - OEDEMA PERIPHERAL [None]
  - SWELLING FACE [None]
